FAERS Safety Report 4979182-9 (Version None)
Quarter: 2006Q2

REPORT INFORMATION
  Report Type: 
  Country: None (occurrence: None)
  Receive Date: 20060421
  Receipt Date: 20060405
  Transmission Date: 20061013
  Serious: Yes (Hospitalization)
  Sender: FDA-Public Use
  Company Number: US-GLAXOSMITHKLINE-A0600664B

PATIENT
  Age: 54 Year
  Sex: Female
  Weight: 84.5 kg

DRUGS (1)
  1. TOPOTECAN [Suspect]
     Indication: OVARIAN CANCER METASTATIC
     Dosage: 4.25MG PER DAY
     Route: 048
     Dates: start: 20060302

REACTIONS (2)
  - DEHYDRATION [None]
  - VOMITING [None]
